FAERS Safety Report 15238913 (Version 3)
Quarter: 2018Q4

REPORT INFORMATION
  Report Type: Report from Study
  Country: CA (occurrence: CA)
  Receive Date: 20180803
  Receipt Date: 20180821
  Transmission Date: 20190204
  Serious: Yes (Death, Hospitalization)
  Sender: FDA-Public Use
  Company Number: CA-TAIHO ONCOLOGY  INC-EU-2018-00844

PATIENT
  Age: 85 Year
  Sex: Male

DRUGS (8)
  1. DECADRON [Suspect]
     Active Substance: DEXAMETHASONE
     Dosage: NI
  2. PANTOLOC [Concomitant]
     Active Substance: PANTOPRAZOLE SODIUM
     Dosage: NI
  3. IRBESARTAN. [Concomitant]
     Active Substance: IRBESARTAN
     Dosage: NI
  4. SYNTHROID [Concomitant]
     Active Substance: LEVOTHYROXINE SODIUM
     Dosage: NI
  5. LONSURF [Suspect]
     Active Substance: TIPIRACIL HYDROCHLORIDE\TRIFLURIDINE
     Indication: COLORECTAL CANCER METASTATIC
     Dosage: CYCLE 2 STARTED ON 11/JUN/2018
     Route: 048
     Dates: start: 20180521, end: 2018
  6. DUTASTERID [Concomitant]
     Dosage: NI
  7. LAXADAY [Concomitant]
     Dosage: NI
  8. XARELTO [Concomitant]
     Active Substance: RIVAROXABAN
     Dosage: NI

REACTIONS (9)
  - Disease progression [Fatal]
  - Hypoxia [Unknown]
  - Malaise [Recovered/Resolved]
  - Carcinoembryonic antigen increased [Unknown]
  - Bronchitis [Unknown]
  - Asthenia [Unknown]
  - Malaise [Unknown]
  - Pyrexia [Unknown]
  - Candida infection [Unknown]

NARRATIVE: CASE EVENT DATE: 20180523
